FAERS Safety Report 8392131-9 (Version None)
Quarter: 2012Q2

REPORT INFORMATION
  Report Type: 
  Country: None (occurrence: None)
  Receive Date: 20120524
  Receipt Date: 20120524
  Transmission Date: 20120825
  Serious: No
  Sender: FDA-Public Use
  Company Number: None

PATIENT
  Age: 49 Year
  Sex: Female
  Weight: 68.4932 kg

DRUGS (2)
  1. LEXAPRO [Suspect]
     Indication: ANXIETY
     Dosage: 15MG/DAY
     Dates: start: 20120505, end: 20120523
  2. LEXAPRO [Suspect]
     Indication: DEPRESSION
     Dosage: 15MG/DAY
     Dates: start: 20120505, end: 20120523

REACTIONS (5)
  - DISEASE RECURRENCE [None]
  - WITHDRAWAL SYNDROME [None]
  - PRODUCT SUBSTITUTION ISSUE [None]
  - DEPRESSION [None]
  - DRUG INEFFECTIVE [None]
